FAERS Safety Report 6752110-1 (Version None)
Quarter: 2010Q2

REPORT INFORMATION
  Report Type: 
  Country: None (occurrence: None)
  Receive Date: 20100601
  Receipt Date: 20100601
  Transmission Date: 20101027
  Serious: Yes (Life-Threatening, Hospitalization)
  Sender: FDA-Public Use
  Company Number: None

PATIENT
  Age: 93 Year
  Sex: Female
  Weight: 81.4 kg

DRUGS (15)
  1. PRIVIGEN [Suspect]
     Indication: GUILLAIN-BARRE SYNDROME
     Dosage: 30 GM DAILY IV
     Route: 042
     Dates: start: 20100523, end: 20100527
  2. ALENDRONATE [Concomitant]
  3. ASCORBIC ACID [Concomitant]
  4. ASPIRIN [Concomitant]
  5. HEPARIN [Concomitant]
  6. ACETAMINOPHEN [Concomitant]
  7. DIPHENHYDRAMINE HYDROCHLORIDE [Concomitant]
  8. HYDRALAZINE HCL [Concomitant]
  9. HYDROCHLOROTHIAZIDE [Concomitant]
  10. IBUPROFEN [Concomitant]
  11. LEVOTHYROXINE SODIUM [Concomitant]
  12. METOPROLOL [Concomitant]
  13. MULTI-VITAMIN [Concomitant]
  14. OMEPRAZOLE [Concomitant]
  15. PANTORPAZOLE [Concomitant]

REACTIONS (2)
  - HYPONATRAEMIA [None]
  - INAPPROPRIATE ANTIDIURETIC HORMONE SECRETION [None]
